FAERS Safety Report 11522193 (Version 2)
Quarter: 2015Q4

REPORT INFORMATION
  Report Type: Spontaneous
  Country: US (occurrence: US)
  Receive Date: 20150918
  Receipt Date: 20151026
  Transmission Date: 20160304
  Serious: Yes (Other)
  Sender: FDA-Public Use
  Company Number: US-PFIZER INC-2015306908

PATIENT
  Age: 79 Year
  Sex: Female
  Weight: 77 kg

DRUGS (4)
  1. SILDENAFIL CITRATE. [Suspect]
     Active Substance: SILDENAFIL CITRATE
     Dosage: 20 MG, UNK
     Route: 048
     Dates: end: 20150911
  2. BUMETANIDE. [Concomitant]
     Active Substance: BUMETANIDE
     Dosage: 1 MG, 1X/DAY
  3. GLIPIZIDE. [Concomitant]
     Active Substance: GLIPIZIDE
     Indication: TYPE 2 DIABETES MELLITUS
     Dosage: TABLET 5 MG, SHE TOOK A HALF OF TABLET (2.5 MG), UNK
  4. SYNTHROID [Concomitant]
     Active Substance: LEVOTHYROXINE SODIUM
     Indication: THYROID DISORDER
     Dosage: 1000 ?G, 1X/DAY

REACTIONS (5)
  - Condition aggravated [Unknown]
  - Drug intolerance [Unknown]
  - Drug ineffective [Unknown]
  - Gait disturbance [Unknown]
  - Dyspnoea [Unknown]
